FAERS Safety Report 7421503-1 (Version None)
Quarter: 2011Q2

REPORT INFORMATION
  Report Type: 
  Country: None (occurrence: None)
  Receive Date: 20110418
  Receipt Date: 20110404
  Transmission Date: 20111010
  Serious: Yes (Hospitalization, Other)
  Sender: FDA-Public Use
  Company Number: US-CELGENEUS-163-21880-11022239

PATIENT
  Sex: Female
  Weight: 63.56 kg

DRUGS (23)
  1. DIFLUCAN [Concomitant]
     Route: 065
     Dates: start: 20110308
  2. DILTIAZEM HCL [Concomitant]
     Route: 048
  3. OXYCODONE/ACETAMINOPHEN [Concomitant]
     Dosage: 5-325MG
     Route: 048
  4. FUROSEMIDE [Concomitant]
     Route: 048
  5. MEGACE [Concomitant]
     Dosage: 20CC
     Route: 048
     Dates: start: 20110214
  6. CITALOPRAM HYDROBROMIDE [Concomitant]
     Route: 048
  7. KLOR-CON [Concomitant]
     Route: 048
  8. OMEPRAZOLE [Concomitant]
     Route: 048
  9. ALLOPURINOL [Concomitant]
     Dosage: 300 MILLIGRAM
     Route: 048
  10. REVLIMID [Suspect]
     Route: 048
     Dates: start: 20110310
  11. ZOVIRAX [Concomitant]
     Indication: PROPHYLAXIS
     Route: 048
     Dates: start: 20110308
  12. LISINOPRIL [Concomitant]
     Route: 048
  13. DEXAMETHASONE [Concomitant]
     Dosage: 40 MILLIGRAM
     Route: 048
     Dates: start: 20110308
  14. BACTRIM DS [Concomitant]
     Route: 048
     Dates: start: 20110308
  15. SENNA [Concomitant]
     Route: 048
  16. ASPIRIN [Concomitant]
     Dosage: 81 MILLIGRAM
     Route: 048
  17. ZOMETA [Concomitant]
     Dosage: 4 MILLIGRAM
     Route: 051
  18. REVLIMID [Suspect]
     Indication: MULTIPLE MYELOMA
     Route: 048
     Dates: start: 20100831, end: 20110214
  19. ALPRAZOLAM [Concomitant]
     Route: 048
  20. VELCADE [Concomitant]
     Route: 065
  21. DEXAMETHASONE [Concomitant]
     Dosage: 40 MILLIGRAM
     Route: 048
     Dates: start: 20100831
  22. SIMVASTATIN [Concomitant]
     Route: 048
  23. FERROUS SULFATE TAB [Concomitant]
     Route: 048

REACTIONS (12)
  - DEMENTIA [None]
  - FEELING OF BODY TEMPERATURE CHANGE [None]
  - DYSKINESIA [None]
  - URINARY TRACT INFECTION [None]
  - RASH PRURITIC [None]
  - DECREASED APPETITE [None]
  - NAUSEA [None]
  - ASTHENIA [None]
  - TREATMENT NONCOMPLIANCE [None]
  - DEHYDRATION [None]
  - CONFUSIONAL STATE [None]
  - FAECES DISCOLOURED [None]
